FAERS Safety Report 5673645-9 (Version None)
Quarter: 2008Q1

REPORT INFORMATION
  Report Type: 
  Country: None (occurrence: None)
  Receive Date: 20080319
  Receipt Date: 20080311
  Transmission Date: 20080703
  Serious: Yes (Hospitalization)
  Sender: FDA-Public Use
  Company Number: US-ABBOTT-08P-163-0441919-00

PATIENT
  Sex: Male
  Weight: 67.646 kg

DRUGS (1)
  1. HUMIRA [Suspect]
     Indication: CROHN'S DISEASE
     Route: 058
     Dates: end: 20070701

REACTIONS (4)
  - GRANULOMATOUS LIVER DISEASE [None]
  - HEPATIC ENZYME INCREASED [None]
  - HISTOPLASMOSIS [None]
  - WEIGHT DECREASED [None]
